FAERS Safety Report 25448903 (Version 1)
Quarter: 2025Q2

REPORT INFORMATION
  Report Type: Spontaneous
  Country: ES (occurrence: ES)
  Receive Date: 20250618
  Receipt Date: 20250618
  Transmission Date: 20250717
  Serious: Yes (Other)
  Sender: TAKEDA
  Company Number: ES-TAKEDA-2025TUS046558

PATIENT
  Age: 64 Year
  Sex: Male

DRUGS (16)
  1. MARIBAVIR [Suspect]
     Active Substance: MARIBAVIR
     Indication: Antiviral prophylaxis
  2. MARIBAVIR [Suspect]
     Active Substance: MARIBAVIR
  3. MARIBAVIR [Suspect]
     Active Substance: MARIBAVIR
  4. GANCICLOVIR [Suspect]
     Active Substance: GANCICLOVIR
     Indication: Antiviral prophylaxis
  5. GANCICLOVIR [Suspect]
     Active Substance: GANCICLOVIR
  6. TACROLIMUS [Suspect]
     Active Substance: TACROLIMUS
     Indication: Heart transplant
  7. EVEROLIMUS [Suspect]
     Active Substance: EVEROLIMUS
     Indication: Antiviral prophylaxis
  8. EVEROLIMUS [Suspect]
     Active Substance: EVEROLIMUS
     Indication: Pleural effusion
  9. VALGANCICLOVIR [Suspect]
     Active Substance: VALGANCICLOVIR
     Indication: Antiviral prophylaxis
  10. VALGANCICLOVIR [Suspect]
     Active Substance: VALGANCICLOVIR
  11. BASILIXIMAB [Suspect]
     Active Substance: BASILIXIMAB
     Indication: Heart transplant
  12. MYCOPHENOLATE MOFETIL [Suspect]
     Active Substance: MYCOPHENOLATE MOFETIL
     Indication: Heart transplant
  13. FOSCARNET [Suspect]
     Active Substance: FOSCARNET
     Indication: Antiviral prophylaxis
  14. FOSCARNET [Suspect]
     Active Substance: FOSCARNET
     Indication: Renal impairment
  15. ECULIZUMAB [Concomitant]
     Active Substance: ECULIZUMAB
  16. LETERMOVIR [Concomitant]
     Active Substance: LETERMOVIR

REACTIONS (8)
  - Thrombotic microangiopathy [Recovering/Resolving]
  - Pancytopenia [Unknown]
  - Condition aggravated [Recovering/Resolving]
  - Pneumonia [Unknown]
  - Cytomegalovirus infection [Not Recovered/Not Resolved]
  - Therapeutic product effect incomplete [Unknown]
  - Drug resistance mutation [Unknown]
  - Drug ineffective [Unknown]

NARRATIVE: CASE EVENT DATE: 20230701
